FAERS Safety Report 6180702-X (Version None)
Quarter: 2009Q2

REPORT INFORMATION
  Report Type: 
  Country: None (occurrence: None)
  Receive Date: 20090506
  Receipt Date: 20090427
  Transmission Date: 20091009
  Serious: Yes (Death, Hospitalization)
  Sender: FDA-Public Use
  Company Number: US-ROCHE-593908

PATIENT
  Sex: Female

DRUGS (6)
  1. CAPECITABINE [Suspect]
     Indication: BREAST CANCER
     Route: 048
     Dates: start: 20080917, end: 20081013
  2. DASATINIB [Suspect]
     Indication: BREAST CANCER
     Route: 048
     Dates: start: 20080917, end: 20081013
  3. ATENOLOL [Concomitant]
     Dates: end: 20081126
  4. ATIVAN [Concomitant]
     Dates: end: 20081126
  5. OXYCODONE [Concomitant]
     Dates: end: 20081126
  6. COMPAZINE [Concomitant]
     Dates: end: 20081126

REACTIONS (3)
  - MALIGNANT NEOPLASM PROGRESSION [None]
  - PLEURAL EFFUSION [None]
  - PNEUMONIA [None]
